FAERS Safety Report 6112086-7 (Version None)
Quarter: 2009Q1

REPORT INFORMATION
  Report Type: 
  Country: None (occurrence: None)
  Receive Date: 20090311
  Receipt Date: 20090227
  Transmission Date: 20090719
  Serious: Yes (Other)
  Sender: FDA-Public Use
  Company Number: JP-PFIZER INC-2009171409

PATIENT

DRUGS (3)
  1. CHANTIX [Suspect]
     Indication: SMOKING CESSATION THERAPY
     Dosage: 0.5 MG, 2X/DAY
     Route: 048
     Dates: start: 20090121
  2. CHANTIX [Interacting]
     Indication: NICOTINE DEPENDENCE
  3. ALCOHOL [Suspect]

REACTIONS (5)
  - ABNORMAL BEHAVIOUR [None]
  - BLOOD TRIGLYCERIDES INCREASED [None]
  - BLOOD URIC ACID INCREASED [None]
  - INSOMNIA [None]
  - LIVER DISORDER [None]
